FAERS Safety Report 5918542-6 (Version None)
Quarter: 2008Q4

REPORT INFORMATION
  Report Type: 
  Country: None (occurrence: None)
  Receive Date: 20081014
  Receipt Date: 20081014
  Transmission Date: 20090506
  Serious: No
  Sender: FDA-Public Use
  Company Number: None

PATIENT
  Age: 28 Year
  Sex: Female
  Weight: 79.3795 kg

DRUGS (1)
  1. FACTIVE [Suspect]
     Indication: BRONCHITIS
     Dosage: 320 MG 1X DAY PO
     Route: 048
     Dates: start: 20081003, end: 20081008

REACTIONS (4)
  - GENERALISED ERYTHEMA [None]
  - PAIN [None]
  - PRURITUS [None]
  - URTICARIA [None]
